FAERS Safety Report 14478535 (Version 2)
Quarter: 2020Q3

REPORT INFORMATION
  Report Type: Spontaneous
  Country: ES (occurrence: ES)
  Receive Date: 20180202
  Receipt Date: 20180223
  Transmission Date: 20201104
  Serious: Yes (Death)
  Sender: FDA-Public Use
  Company Number: ES-ROCHE-2060598

PATIENT
  Age: 53 Year
  Sex: Female
  Weight: 64 kg

DRUGS (8)
  1. AUGMENTINE [Concomitant]
     Active Substance: AMOXICILLIN\CLAVULANATE POTASSIUM
     Indication: URINARY TRACT INFECTION
     Route: 042
     Dates: start: 20171124
  2. NOLOTIL (METAMIZOLE MAGNESIUM) [Concomitant]
     Active Substance: METAMIZOLE MAGNESIUM
     Indication: PAIN
     Route: 048
     Dates: start: 20171117
  3. CEFIXIME. [Concomitant]
     Active Substance: CEFIXIME
     Indication: URINARY TRACT INFECTION
     Route: 048
     Dates: start: 20171114, end: 20171121
  4. ALECTINIB. [Suspect]
     Active Substance: ALECTINIB
     Indication: NON-SMALL CELL LUNG CANCER
     Route: 048
     Dates: start: 20171025, end: 20171124
  5. FENTANIL [Concomitant]
     Active Substance: FENTANYL
     Indication: PAIN
     Route: 062
     Dates: start: 20171117
  6. BUPROPION. [Concomitant]
     Active Substance: BUPROPION
     Indication: DEPRESSION
     Route: 048
     Dates: start: 20160615, end: 20171126
  7. FUROSEMIDE. [Concomitant]
     Active Substance: FUROSEMIDE
     Indication: OLIGURIA
     Route: 048
     Dates: start: 20171117, end: 20171126
  8. VORTIOXETINE. [Concomitant]
     Active Substance: VORTIOXETINE
     Indication: DEPRESSION
     Route: 048
     Dates: start: 20160615, end: 20171126

REACTIONS (1)
  - Renal failure [Fatal]

NARRATIVE: CASE EVENT DATE: 20171126
